FAERS Safety Report 19451945 (Version 1)
Quarter: 2021Q2

REPORT INFORMATION
  Report Type: Spontaneous
  Country: US (occurrence: US)
  Receive Date: 20210622
  Receipt Date: 20210622
  Transmission Date: 20210717
  Serious: Yes (Disabling)
  Sender: FDA-Public Use
  Company Number: None

PATIENT
  Age: 83 Year
  Sex: Female
  Weight: 77.11 kg

DRUGS (9)
  1. TOPROL XL [Concomitant]
     Active Substance: METOPROLOL SUCCINATE
  2. ELIQUIS [Concomitant]
     Active Substance: APIXABAN
  3. ARMOUR THYROID [Concomitant]
     Active Substance: THYROID, PORCINE
  4. NP THYROID [Suspect]
     Active Substance: LEVOTHYROXINE\LIOTHYRONINE
     Indication: HYPOTHYROIDISM
     Dosage: ?          QUANTITY:1 PILL;?
     Route: 048
     Dates: start: 20210101, end: 20210303
  5. TYLENOL [Concomitant]
     Active Substance: ACETAMINOPHEN
  6. CARDIZEM CD [Concomitant]
     Active Substance: DILTIAZEM HYDROCHLORIDE
  7. CLARITIN [Concomitant]
     Active Substance: LORATADINE
  8. NEXIUM [Concomitant]
     Active Substance: ESOMEPRAZOLE MAGNESIUM
  9. CITRACAL [Concomitant]
     Active Substance: CALCIUM CITRATE

REACTIONS (6)
  - Tremor [None]
  - Incorrect dose administered [None]
  - Weight increased [None]
  - Asthenia [None]
  - Arrhythmia [None]
  - Alopecia [None]

NARRATIVE: CASE EVENT DATE: 20210303
